FAERS Safety Report 22364674 (Version 1)
Quarter: 2023Q2

REPORT INFORMATION
  Report Type: Spontaneous
  Country: BE (occurrence: BE)
  Receive Date: 20230525
  Receipt Date: 20230525
  Transmission Date: 20230722
  Serious: Yes (Disabling)
  Sender: FDA-Public Use
  Company Number: BE-SA-2023SA158256

PATIENT
  Age: 43 Year
  Sex: Female

DRUGS (1)
  1. ALLEGRA [Suspect]
     Active Substance: FEXOFENADINE HYDROCHLORIDE
     Indication: Hypersensitivity
     Dosage: 1 DF IN THE MORNING
     Route: 048
     Dates: start: 20230506, end: 20230508

REACTIONS (3)
  - Somnolence [Recovering/Resolving]
  - Somnolence [Recovering/Resolving]
  - Dizziness [Recovering/Resolving]

NARRATIVE: CASE EVENT DATE: 20230506
